FAERS Safety Report 23890279 (Version 1)
Quarter: 2024Q2

REPORT INFORMATION
  Report Type: Spontaneous
  Country: US (occurrence: US)
  Receive Date: 20240523
  Receipt Date: 20240523
  Transmission Date: 20240716
  Serious: No
  Sender: FDA-Public Use
  Company Number: US-MYLANLABS-2024M1042871

PATIENT
  Sex: Female

DRUGS (1)
  1. SCOPOLAMINE TRANDERMAL SYSTEM [Suspect]
     Active Substance: SCOPOLAMINE
     Indication: Dizziness
     Dosage: 1 MILLIGRAM, (EVERY 72 HOURS)
     Route: 062
     Dates: start: 20240425

REACTIONS (2)
  - Product adhesion issue [Unknown]
  - Off label use [Unknown]
